FAERS Safety Report 15345691 (Version 1)
Quarter: 2018Q3

REPORT INFORMATION
  Report Type: Spontaneous
  Country: US (occurrence: US)
  Receive Date: 20180904
  Receipt Date: 20180904
  Transmission Date: 20181010
  Serious: Yes (Other)
  Sender: FDA-Public Use
  Company Number: US-009507513-1809USA000039

PATIENT
  Sex: Female

DRUGS (3)
  1. PLATINUM [Suspect]
     Active Substance: PLATINUM
     Indication: NON-SMALL CELL LUNG CANCER
     Dosage: UNK
     Dates: end: 20180807
  2. PEMETREXED DISODIUM [Suspect]
     Active Substance: PEMETREXED DISODIUM
     Indication: NON-SMALL CELL LUNG CANCER
     Dosage: UNK
     Dates: end: 20180807
  3. KEYTRUDA [Suspect]
     Active Substance: PEMBROLIZUMAB
     Indication: NON-SMALL CELL LUNG CANCER
     Dosage: 200 MG EVERY 3 WEEKS
     Dates: end: 20180807

REACTIONS (1)
  - Malignant neoplasm progression [Not Recovered/Not Resolved]
